FAERS Safety Report 6060937-7 (Version None)
Quarter: 2009Q1

REPORT INFORMATION
  Report Type: 
  Country: None (occurrence: None)
  Receive Date: 20090202
  Receipt Date: 20090121
  Transmission Date: 20090719
  Serious: Yes (Other)
  Sender: FDA-Public Use
  Company Number: US-ROCHE-592328

PATIENT
  Age: 82 Year
  Sex: Female

DRUGS (6)
  1. BONIVA [Suspect]
     Indication: OSTEOPOROSIS
     Route: 065
     Dates: end: 20081217
  2. SINEMET [Concomitant]
  3. ASPIRIN [Concomitant]
     Dosage: DRUG NAME: BABY ASPIRIN
  4. LORAZEPAM [Concomitant]
     Dosage: DRUG NAME: LORZEPAM
  5. FOLIC ACID [Concomitant]
  6. AZILECT [Concomitant]

REACTIONS (4)
  - FALL [None]
  - HIP FRACTURE [None]
  - NO ADVERSE EVENT [None]
  - WRONG TECHNIQUE IN DRUG USAGE PROCESS [None]
